FAERS Safety Report 8093987-X (Version None)
Quarter: 2012Q1

REPORT INFORMATION
  Report Type: 
  Country: None (occurrence: None)
  Receive Date: 20120130
  Receipt Date: 20120119
  Transmission Date: 20120608
  Serious: Yes (Other)
  Sender: FDA-Public Use
  Company Number: BR-BRISTOL-MYERS SQUIBB COMPANY-16364473

PATIENT
  Sex: Male

DRUGS (2)
  1. TENOFOVIR DISOPROSIL FUMARATE (VIREAD) [Concomitant]
  2. BARACLUDE [Suspect]

REACTIONS (1)
  - HEPATITIS [None]
